FAERS Safety Report 16792623 (Version 1)
Quarter: 2019Q3

REPORT INFORMATION
  Report Type: Report from Study
  Country: JP (occurrence: JP)
  Receive Date: 20190910
  Receipt Date: 20190910
  Transmission Date: 20191005
  Serious: Yes (Hospitalization, Other)
  Sender: FDA-Public Use
  Company Number: JP-UCBSA-2019021668

PATIENT
  Age: 69 Year
  Sex: Male
  Weight: 50 kg

DRUGS (47)
  1. E KEPPRA [Suspect]
     Active Substance: LEVETIRACETAM
     Indication: FOCAL DYSCOGNITIVE SEIZURES
     Dosage: 1000 MG DAILY
     Route: 048
     Dates: end: 20180318
  2. HORIZON [Concomitant]
     Active Substance: DIAZEPAM
     Indication: PARTIAL SEIZURES WITH SECONDARY GENERALISATION
     Dosage: 5 MG DAILY
     Route: 042
     Dates: start: 20180407, end: 20180407
  3. OMEPRAL [Concomitant]
     Active Substance: OMEPRAZOLE
     Indication: PRODUCT USED FOR UNKNOWN INDICATION
     Dosage: 20 MG DAILY
     Route: 042
     Dates: start: 20180408, end: 20180408
  4. AMLODIPINE [Concomitant]
     Active Substance: AMLODIPINE BESYLATE
     Indication: PRODUCT USED FOR UNKNOWN INDICATION
     Dosage: 2.5 MG DAILY
     Route: 048
  5. AMLODIPINE [Concomitant]
     Active Substance: AMLODIPINE BESYLATE
     Route: 048
  6. YOKUKANSAN [Concomitant]
     Active Substance: HERBALS
     Indication: PRODUCT USED FOR UNKNOWN INDICATION
     Dosage: 7.5 G DAILY
     Route: 048
     Dates: start: 20180423
  7. LACOSAMIDE. [Suspect]
     Active Substance: LACOSAMIDE
     Dosage: 100 MILLIGRAM, 2X/DAY (BID)
     Route: 048
     Dates: start: 20180413
  8. SULBACILLIN [Concomitant]
     Active Substance: AMPICILLIN SODIUM\SULBACTAM SODIUM
     Indication: PRODUCT USED FOR UNKNOWN INDICATION
     Dosage: 4.5 G DAILY
     Route: 042
     Dates: start: 20180408, end: 20180414
  9. VITAMEDIN [Concomitant]
     Active Substance: CYANOCOBALAMIN\PYRIDOXINE HYDROCHLORIDE\THIAMINE
     Indication: PRODUCT USED FOR UNKNOWN INDICATION
     Dosage: UNK
     Route: 042
     Dates: start: 20180410, end: 20180412
  10. FOLIAMIN [Concomitant]
     Active Substance: FOLIC ACID
     Indication: PRODUCT USED FOR UNKNOWN INDICATION
     Dosage: 5 MG DAILY
     Route: 048
  11. FOLIAMIN [Concomitant]
     Active Substance: FOLIC ACID
     Route: 048
  12. RISPERDAL [Concomitant]
     Active Substance: RISPERIDONE
     Route: 048
     Dates: end: 20180417
  13. WARFARIN [Concomitant]
     Active Substance: WARFARIN
     Indication: PRODUCT USED FOR UNKNOWN INDICATION
     Dosage: 3 MG DAILY
     Route: 048
     Dates: end: 20180407
  14. NEXIUM [Concomitant]
     Active Substance: ESOMEPRAZOLE MAGNESIUM
     Route: 048
     Dates: end: 20180407
  15. URSODEOXYCHOLIC ACID [Concomitant]
     Active Substance: URSODIOL
     Route: 048
  16. TELEMINSOFT [Concomitant]
     Active Substance: BISACODYL
     Indication: CONSTIPATION
     Dosage: 10 MG DAILY
     Route: 054
     Dates: start: 20180410, end: 20180420
  17. MAGMITT [Concomitant]
     Active Substance: MAGNESIUM OXIDE
     Indication: PRODUCT USED FOR UNKNOWN INDICATION
     Dosage: 750 MG DAILY
     Route: 048
     Dates: end: 20180504
  18. BELSOMRA [Concomitant]
     Active Substance: SUVOREXANT
     Indication: PRODUCT USED FOR UNKNOWN INDICATION
     Dosage: 15 MG DAILY
     Route: 048
     Dates: start: 20180404, end: 20180618
  19. BELSOMRA [Concomitant]
     Active Substance: SUVOREXANT
     Route: 048
     Dates: start: 20180404, end: 20180618
  20. E KEPPRA [Suspect]
     Active Substance: LEVETIRACETAM
     Dosage: 500 MG DAILY
     Route: 048
     Dates: start: 20180410, end: 20180412
  21. HORIZON [Concomitant]
     Active Substance: DIAZEPAM
     Route: 042
     Dates: start: 20180319, end: 20180319
  22. SULBACILLIN [Concomitant]
     Active Substance: AMPICILLIN SODIUM\SULBACTAM SODIUM
     Route: 042
     Dates: start: 20180408, end: 20180414
  23. SHIGMABITAN [Concomitant]
     Indication: PRODUCT USED FOR UNKNOWN INDICATION
     Dosage: UNK DOSE
     Route: 048
  24. MOSAPRIDE CITRATE [Concomitant]
     Active Substance: MOSAPRIDE CITRATE
     Indication: PRODUCT USED FOR UNKNOWN INDICATION
     Dosage: 15 MG DAILY
     Route: 048
  25. HALOPERIDOL. [Concomitant]
     Active Substance: HALOPERIDOL
     Indication: DELIRIUM
     Dosage: UNK
     Dates: start: 201804
  26. LACOSAMIDE. [Suspect]
     Active Substance: LACOSAMIDE
     Indication: FOCAL DYSCOGNITIVE SEIZURES
     Dosage: 50 MILLIGRAM, 2X/DAY (BID)
     Route: 048
     Dates: start: 20180404, end: 20180408
  27. LACOSAMIDE. [Suspect]
     Active Substance: LACOSAMIDE
     Indication: PARTIAL SEIZURES WITH SECONDARY GENERALISATION
     Dosage: 50 MILLIGRAM, 2X/DAY (BID)
     Route: 048
     Dates: start: 20180410, end: 20180412
  28. E KEPPRA [Suspect]
     Active Substance: LEVETIRACETAM
     Indication: PARTIAL SEIZURES WITH SECONDARY GENERALISATION
     Dosage: 1000 MG DAILY
     Route: 048
     Dates: start: 20180320, end: 20180403
  29. URSODEOXYCHOLIC ACID [Concomitant]
     Active Substance: URSODIOL
     Indication: PRODUCT USED FOR UNKNOWN INDICATION
     Dosage: 600 MG DAILY
     Route: 048
  30. MAGMITT [Concomitant]
     Active Substance: MAGNESIUM OXIDE
     Route: 048
     Dates: end: 20180504
  31. E KEPPRA [Concomitant]
     Active Substance: LEVETIRACETAM
     Indication: FOCAL DYSCOGNITIVE SEIZURES
     Dosage: 1000 MG DAILY
     Route: 041
     Dates: start: 20180319, end: 20180319
  32. HORIZON [Concomitant]
     Active Substance: DIAZEPAM
     Indication: FOCAL DYSCOGNITIVE SEIZURES
     Dosage: 10 MG DAILY
     Route: 042
     Dates: start: 20180319, end: 20180319
  33. HORIZON [Concomitant]
     Active Substance: DIAZEPAM
     Route: 042
     Dates: start: 20180407, end: 20180407
  34. TAKECAB [Concomitant]
     Active Substance: VONOPRAZAN FUMURATE
     Indication: PRODUCT USED FOR UNKNOWN INDICATION
     Dosage: 20 MG DAILY
     Route: 048
     Dates: start: 20180410
  35. SHIGMABITAN [Concomitant]
     Route: 048
  36. SERENACE [Concomitant]
     Active Substance: HALOPERIDOL
     Indication: PRODUCT USED FOR UNKNOWN INDICATION
     Dosage: 5 MG DAILY
     Route: 042
     Dates: start: 20180407, end: 20180407
  37. RISPERDAL [Concomitant]
     Active Substance: RISPERIDONE
     Indication: PRODUCT USED FOR UNKNOWN INDICATION
     Dosage: 1 MG DAILY
     Route: 048
     Dates: end: 20180417
  38. WARFARIN [Concomitant]
     Active Substance: WARFARIN
     Route: 048
     Dates: end: 20180407
  39. DIAZEPAM. [Concomitant]
     Active Substance: DIAZEPAM
     Indication: DELIRIUM
  40. E KEPPRA [Suspect]
     Active Substance: LEVETIRACETAM
     Dosage: 500 MG DAILY
     Route: 048
     Dates: start: 20180404, end: 20180407
  41. E KEPPRA [Concomitant]
     Active Substance: LEVETIRACETAM
     Indication: PARTIAL SEIZURES WITH SECONDARY GENERALISATION
     Dosage: 500 MG DAILY
     Route: 041
     Dates: start: 20180407, end: 20180409
  42. HORIZON [Concomitant]
     Active Substance: DIAZEPAM
     Dosage: 6 MG DAILY
     Route: 042
     Dates: start: 20180417, end: 20180613
  43. OMEPRAL [Concomitant]
     Active Substance: OMEPRAZOLE
     Dosage: 40 MG DAILY
     Route: 042
     Dates: start: 20180409, end: 20180409
  44. QUETIAPINE. [Concomitant]
     Active Substance: QUETIAPINE
     Indication: PRODUCT USED FOR UNKNOWN INDICATION
     Dosage: 25 MG DAILY
     Route: 048
     Dates: start: 20180404, end: 20180418
  45. QUETIAPINE. [Concomitant]
     Active Substance: QUETIAPINE
     Dosage: 50 MG DAILY
     Route: 048
     Dates: start: 20180419, end: 20180613
  46. NEXIUM [Concomitant]
     Active Substance: ESOMEPRAZOLE MAGNESIUM
     Indication: PRODUCT USED FOR UNKNOWN INDICATION
     Dosage: 20 MG DAILY
     Route: 048
     Dates: end: 20180407
  47. SHIGMABITAN [Concomitant]
     Route: 048

REACTIONS (7)
  - Vomiting [Recovered/Resolved]
  - Gastrointestinal haemorrhage [Recovered/Resolved]
  - Pneumonia aspiration [Recovered/Resolved]
  - Blood potassium decreased [Recovered/Resolved]
  - Delirium [Recovering/Resolving]
  - Gastrooesophageal reflux disease [Recovered/Resolved]
  - Constipation [Recovered/Resolved]

NARRATIVE: CASE EVENT DATE: 20180407
